FAERS Safety Report 4741800-8 (Version None)
Quarter: 2005Q3

REPORT INFORMATION
  Report Type: 
  Country: None (occurrence: None)
  Receive Date: 20050808
  Receipt Date: 20050725
  Transmission Date: 20060218
  Serious: Yes (Other)
  Sender: FDA-Public Use
  Company Number: 2005090515

PATIENT
  Age: 50 Year
  Sex: Female

DRUGS (5)
  1. ALPRAZOLAM [Suspect]
     Indication: ANXIETY
     Dosage: 0.5 MG (0.5 MG, 1 IN 1 D), ORAL
     Route: 048
     Dates: start: 20030401
  2. ALPRAZOLAM [Suspect]
     Indication: PANIC DISORDER
     Dosage: 0.5 MG (0.5 MG, 1 IN 1 D), ORAL
     Route: 048
     Dates: start: 20030401
  3. VERAPAMIL HYDROCHLORIDE [Suspect]
     Indication: PALPITATIONS
     Dosage: 160 MG (80 MG, 2 IN 1 D), ORAL
     Route: 048
     Dates: start: 20050401
  4. VERAPAMIL HYDROCHLORIDE [Suspect]
     Indication: TACHYCARDIA
     Dosage: 160 MG (80 MG, 2 IN 1 D), ORAL
     Route: 048
     Dates: start: 20050401
  5. MONTELUKAST (MOTELUKAST) [Concomitant]

REACTIONS (6)
  - PALLOR [None]
  - PALPITATIONS [None]
  - PANIC REACTION [None]
  - RETINAL HAEMORRHAGE [None]
  - TACHYCARDIA [None]
  - VENTRICULAR HYPERTROPHY [None]
